FAERS Safety Report 20597676 (Version 2)
Quarter: 2022Q3

REPORT INFORMATION
  Report Type: Spontaneous
  Country: NL (occurrence: NL)
  Receive Date: 20220315
  Receipt Date: 20220715
  Transmission Date: 20221027
  Serious: Yes (Death, Hospitalization, Other)
  Sender: FDA-Public Use
  Company Number: NL-ABBVIE-22K-114-4260327-00

PATIENT
  Age: 63 Year
  Sex: Male

DRUGS (9)
  1. RITONAVIR [Interacting]
     Active Substance: RITONAVIR
     Indication: HIV infection
     Dosage: 100 MILLIGRAM, QD
     Route: 048
     Dates: start: 2019
  2. RITONAVIR [Interacting]
     Active Substance: RITONAVIR
     Dosage: 100 MILLIGRAM, QD
     Route: 065
     Dates: start: 2019
  3. PACLITAXEL [Interacting]
     Active Substance: PACLITAXEL
     Indication: Adenocarcinoma gastric
     Dosage: ON DAYS 1, 8, AND 15, IN A 28 DAY CYCLE
     Route: 065
  4. PACLITAXEL [Interacting]
     Active Substance: PACLITAXEL
     Indication: Gastric cancer
  5. ABACAVIR [Concomitant]
     Active Substance: ABACAVIR
     Indication: HIV infection
     Dosage: 600 MILLIGRAM, QD
     Route: 065
     Dates: start: 2019
  6. CARBOPLATIN [Concomitant]
     Active Substance: CARBOPLATIN
     Indication: Adenocarcinoma gastric
     Dosage: TARGET AUC = 4MG MIN/ML (CALVERT); ON DAYS 1, 8, AND 15, IN A 28 DAY CYCLE
     Route: 065
     Dates: start: 2019
  7. CARBOPLATIN [Concomitant]
     Active Substance: CARBOPLATIN
     Indication: Gastric cancer
  8. DARUNAVIR [Concomitant]
     Active Substance: DARUNAVIR
     Indication: HIV infection
     Dosage: 800 MILLIGRAM, QD
     Route: 065
     Dates: start: 2019
  9. LAMIVUDINE [Concomitant]
     Active Substance: LAMIVUDINE
     Indication: HIV infection
     Dosage: 150 MILLIGRAM, QD
     Route: 065
     Dates: start: 2019

REACTIONS (6)
  - Neutropenic sepsis [Fatal]
  - Drug interaction [Fatal]
  - Escherichia sepsis [Fatal]
  - Thrombocytopenia [Unknown]
  - Haemoglobin decreased [Unknown]
  - White blood cell count decreased [Unknown]
